FAERS Safety Report 19751148 (Version 1)
Quarter: 2021Q3

REPORT INFORMATION
  Report Type: Report from Study
  Country: FR (occurrence: FR)
  Receive Date: 20210826
  Receipt Date: 20210826
  Transmission Date: 20211014
  Serious: Yes (Hospitalization)
  Sender: FDA-Public Use
  Company Number: FR-TAKEDA-FR201717338

PATIENT
  Age: 22 Year
  Sex: Male
  Weight: 61 kg

DRUGS (8)
  1. TEDUGLUTIDE [Suspect]
     Active Substance: TEDUGLUTIDE
     Indication: SHORT-BOWEL SYNDROME
     Dosage: 3.0 MG, 1X/DAY:QD
     Route: 058
     Dates: start: 20160927
  2. TEDUGLUTIDE [Suspect]
     Active Substance: TEDUGLUTIDE
     Indication: SHORT-BOWEL SYNDROME
     Dosage: 3.0 MG, 1X/DAY:QD
     Route: 058
     Dates: start: 20160927
  3. VITAMIN B12 [Concomitant]
     Active Substance: CYANOCOBALAMIN
     Indication: VITAMIN SUPPLEMENTATION
     Dosage: 1.0 MG, UNKNOWN
     Route: 030
     Dates: start: 20140311
  4. TEDUGLUTIDE [Suspect]
     Active Substance: TEDUGLUTIDE
     Indication: SHORT-BOWEL SYNDROME
     Dosage: 3.0 MG, 1X/DAY:QD
     Route: 058
     Dates: start: 20160927
  5. COLECALCIFEROL [Concomitant]
     Active Substance: CHOLECALCIFEROL
     Indication: VITAMIN SUPPLEMENTATION
     Dosage: 1.0 DF, UNKNOWN
     Route: 048
     Dates: start: 20140311
  6. DELURSAN [Concomitant]
     Active Substance: URSODIOL
     Indication: CHOLANGITIS SCLEROSING
     Dosage: 500.0 MG, 2X/DAY:BID
     Route: 048
     Dates: start: 201306
  7. IMODIUM [Concomitant]
     Active Substance: LOPERAMIDE HYDROCHLORIDE
     Indication: INTESTINAL TRANSIT TIME DECREASED
     Dosage: 4.0 MG, 3X/DAY:TID
     Route: 048
     Dates: start: 201305
  8. TEDUGLUTIDE [Suspect]
     Active Substance: TEDUGLUTIDE
     Indication: SHORT-BOWEL SYNDROME
     Dosage: 3.0 MG, 1X/DAY:QD
     Route: 058
     Dates: start: 20160927

REACTIONS (1)
  - Gastroenteritis [Recovered/Resolved]

NARRATIVE: CASE EVENT DATE: 20170721
